FAERS Safety Report 9587562 (Version 1)
Quarter: 2013Q4

REPORT INFORMATION
  Report Type: Spontaneous
  Country: JP (occurrence: JP)
  Receive Date: 20131003
  Receipt Date: 20131003
  Transmission Date: 20140711
  Serious: Yes (Other)
  Sender: FDA-Public Use
  Company Number: CHNY2013JP002067

PATIENT
  Age: 77 Year
  Sex: Male

DRUGS (2)
  1. SENNOSIDES A AND B [Suspect]
     Indication: CONSTIPATION
     Dosage: UNK
     Route: 048
  2. MORPHINE SULFATE [Concomitant]
     Dosage: 20 MG, QD

REACTIONS (1)
  - Drug ineffective [Recovered/Resolved]
